FAERS Safety Report 6505398-6 (Version None)
Quarter: 2009Q4

REPORT INFORMATION
  Report Type: 
  Country: None (occurrence: None)
  Receive Date: 20091217
  Receipt Date: 20091217
  Transmission Date: 20100525
  Serious: Yes (Other)
  Sender: FDA-Public Use
  Company Number: None

PATIENT
  Age: 24 Year
  Sex: Male

DRUGS (1)
  1. DOXYCYCLINE [Suspect]
     Indication: PNEUMONIA
     Dosage: 100MG UNKNOWN UNK

REACTIONS (3)
  - DOCUMENTED HYPERSENSITIVITY TO ADMINISTERED DRUG [None]
  - DRUG HYPERSENSITIVITY [None]
  - DRUG PRESCRIBING ERROR [None]
